FAERS Safety Report 4712308-0 (Version None)
Quarter: 2005Q3

REPORT INFORMATION
  Report Type: 
  Country: None (occurrence: None)
  Receive Date: 20050711
  Receipt Date: 20050624
  Transmission Date: 20060218
  Serious: Yes (Hospitalization)
  Sender: FDA-Public Use
  Company Number: 2005BI006725

PATIENT
  Age: 45 Year
  Sex: Female

DRUGS (5)
  1. NATALIZUMAB [Suspect]
     Indication: RELAPSING-REMITTING MULTIPLE SCLEROSIS
     Dosage: IV
     Route: 042
     Dates: start: 20041201, end: 20050201
  2. ZOLOFT [Concomitant]
  3. ELAVIL [Concomitant]
  4. XANAX [Concomitant]
  5. FROVA [Concomitant]

REACTIONS (5)
  - ATROPHY [None]
  - DEPRESSION [None]
  - MULTIPLE SCLEROSIS [None]
  - OEDEMA PERIPHERAL [None]
  - SPINAL DISORDER [None]
